FAERS Safety Report 17858747 (Version 1)
Quarter: 2020Q2

REPORT INFORMATION
  Report Type: Spontaneous
  Country: US (occurrence: US)
  Receive Date: 20200603
  Receipt Date: 20200603
  Transmission Date: 20200714
  Serious: Yes (Other)
  Sender: FDA-Public Use
  Company Number: None

PATIENT
  Age: 51 Year
  Sex: Female
  Weight: 72 kg

DRUGS (20)
  1. REMDESIVIR. [Suspect]
     Active Substance: REMDESIVIR
     Indication: COVID-19
     Route: 042
     Dates: start: 20200528, end: 20200528
  2. FAMOTIDINE. [Concomitant]
     Active Substance: FAMOTIDINE
     Dates: start: 20200601
  3. INSULIN LISPRO [Concomitant]
     Active Substance: INSULIN LISPRO
     Dates: start: 20200601
  4. POTASSIUM [Concomitant]
     Active Substance: POTASSIUM
     Dates: start: 20200527
  5. BUPROPION. [Concomitant]
     Active Substance: BUPROPION
     Dates: start: 20190723, end: 20200527
  6. OCRELIZUMAB. [Concomitant]
     Active Substance: OCRELIZUMAB
     Dates: start: 20190226
  7. PREDNISONE. [Concomitant]
     Active Substance: PREDNISONE
     Dates: start: 20100517, end: 20200531
  8. REMDESIVIR. [Suspect]
     Active Substance: REMDESIVIR
     Indication: COVID-19
     Route: 042
     Dates: start: 20200529, end: 20200531
  9. HYDROMORPHONE [Concomitant]
     Active Substance: HYDROMORPHONE
     Dates: start: 20200527
  10. PROPOFOL. [Concomitant]
     Active Substance: PROPOFOL
     Dates: start: 20200601
  11. SERTRALINE [Concomitant]
     Active Substance: SERTRALINE HYDROCHLORIDE
     Dates: start: 20101003
  12. TRAZODONE [Concomitant]
     Active Substance: TRAZODONE HYDROCHLORIDE
     Dates: start: 20190801, end: 20200601
  13. ARIPIPRAZOLE. [Concomitant]
     Active Substance: ARIPIPRAZOLE
     Dates: start: 20190909
  14. MELATONIN [Concomitant]
     Active Substance: MELATONIN
     Dates: start: 20200527
  15. INSULIN REGULAR [Concomitant]
     Active Substance: INSULIN NOS
     Dates: start: 20200601
  16. CEFTRIAXONE. [Concomitant]
     Active Substance: CEFTRIAXONE
     Dates: start: 20200527
  17. ENOXAPARIN [Concomitant]
     Active Substance: ENOXAPARIN
     Dates: start: 20200527
  18. NOREPINEPHRINE. [Concomitant]
     Active Substance: NOREPINEPHRINE
     Dates: start: 20200601
  19. CETIRIZINE [Concomitant]
     Active Substance: CETIRIZINE HYDROCHLORIDE
     Dates: start: 20100517
  20. GABABPENTIN [Concomitant]
     Dates: start: 20190606, end: 20200601

REACTIONS (2)
  - Liver function test increased [None]
  - Condition aggravated [None]

NARRATIVE: CASE EVENT DATE: 20200601
